FAERS Safety Report 18670202 (Version 1)
Quarter: 2020Q4

REPORT INFORMATION
  Report Type: Spontaneous
  Country: FR (occurrence: FR)
  Receive Date: 20201228
  Receipt Date: 20201228
  Transmission Date: 20210114
  Serious: Yes (Hospitalization)
  Sender: FDA-Public Use
  Company Number: FR-PFIZER INC-2020506973

PATIENT
  Age: 77 Year
  Sex: Female
  Weight: 60 kg

DRUGS (18)
  1. VINCRISTINE SULFATE. [Suspect]
     Active Substance: VINCRISTINE SULFATE
     Dosage: 4 MG, CYCLIC (ON DAY 7 AND DAY 28)
     Route: 042
     Dates: start: 20200814
  2. BELUSTINE [Suspect]
     Active Substance: LOMUSTINE
     Indication: OLIGODENDROGLIOMA
     Dosage: 40 MG, CYCLIC (AT DAY 1)
     Route: 048
     Dates: start: 20200806
  3. PREVISCAN [Concomitant]
     Dosage: 20 MG
     Route: 048
     Dates: start: 20201113
  4. FUNGIZONE [Concomitant]
     Active Substance: AMPHOTERICIN B
     Route: 048
     Dates: start: 20200817
  5. EMEND [Concomitant]
     Active Substance: APREPITANT
     Dosage: 80 MG
     Route: 048
     Dates: start: 20200807
  6. LEVETIRACETAM. [Concomitant]
     Active Substance: LEVETIRACETAM
     Dosage: 500 MG
     Route: 048
     Dates: start: 20200804
  7. INNOHEP [Concomitant]
     Active Substance: TINZAPARIN SODIUM
     Dosage: 0.5 ML
     Route: 058
     Dates: start: 20200804, end: 20201104
  8. HEMIGOXINE NATIVELLE [Concomitant]
     Active Substance: DIGOXIN
     Dosage: 0.13 MG
     Route: 048
     Dates: start: 20200804
  9. CERUMENEX [CERAPON;CHLOROBUTANOL;PROPYLENE GLYCOL] [Concomitant]
     Dosage: 2 ML
     Route: 061
     Dates: start: 20200820, end: 20200830
  10. ATORVASTATIN [Concomitant]
     Active Substance: ATORVASTATIN
     Dosage: 20 MG
     Dates: start: 20200804
  11. LEVOTHYROX [Concomitant]
     Active Substance: LEVOTHYROXINE
     Route: 048
     Dates: start: 20200804
  12. NATULAN [Suspect]
     Active Substance: PROCARBAZINE HYDROCHLORIDE
     Indication: OLIGODENDROGLIOMA
     Dosage: 10 MG, DAILY FOR 14DAYS STARTING FROM DAY 7
     Route: 048
     Dates: start: 20200814
  13. ISOPTINE [Concomitant]
     Active Substance: VERAPAMIL HYDROCHLORIDE
     Dosage: 120 MG
     Route: 048
     Dates: start: 20200804
  14. UVEDOSE [Concomitant]
     Active Substance: CHOLECALCIFEROL
     Dosage: 2 ML
     Route: 048
     Dates: start: 20200807, end: 20200811
  15. DOLIPRANE [Concomitant]
     Active Substance: ACETAMINOPHEN
     Dosage: 4000 MG
     Route: 048
     Dates: start: 20200804
  16. GAVISCON [Concomitant]
     Active Substance: ALUMINUM HYDROXIDE\MAGNESIUM CARBONATE
     Route: 048
     Dates: start: 20200820
  17. PANTOPRAZOLE [Concomitant]
     Active Substance: PANTOPRAZOLE
     Dosage: 20 MG
     Route: 048
     Dates: start: 20200811
  18. ALDACTONE [Concomitant]
     Active Substance: SPIRONOLACTONE
     Route: 048
     Dates: start: 20200804

REACTIONS (3)
  - Ear pain [Recovered/Resolved]
  - Rash pruritic [Recovering/Resolving]
  - Mucosal inflammation [Recovered/Resolved]

NARRATIVE: CASE EVENT DATE: 202008
